FAERS Safety Report 18656422 (Version 1)
Quarter: 2020Q4

REPORT INFORMATION
  Report Type: Spontaneous
  Country: US (occurrence: US)
  Receive Date: 20201223
  Receipt Date: 20201223
  Transmission Date: 20210114
  Serious: Yes (Other)
  Sender: FDA-Public Use
  Company Number: US-PURDUE-USA-2020-0163069

PATIENT
  Sex: Male

DRUGS (2)
  1. DILAUDID [Suspect]
     Active Substance: HYDROMORPHONE HYDROCHLORIDE
     Indication: PRODUCT USED FOR UNKNOWN INDICATION
     Dosage: UNK
     Route: 048
  2. OXYCONTIN [Suspect]
     Active Substance: OXYCODONE HYDROCHLORIDE
     Indication: PRODUCT USED FOR UNKNOWN INDICATION
     Dosage: 40 MG, TID
     Route: 048

REACTIONS (14)
  - Drug dependence [Unknown]
  - Libido decreased [Unknown]
  - Withdrawal syndrome [Unknown]
  - Dizziness [Unknown]
  - Photophobia [Unknown]
  - Mood swings [Unknown]
  - Blood testosterone decreased [Unknown]
  - Dry mouth [Unknown]
  - Nausea [Unknown]
  - Constipation [Unknown]
  - Depressed level of consciousness [Unknown]
  - Hyperhidrosis [Unknown]
  - Amnesia [Unknown]
  - Anhedonia [Not Recovered/Not Resolved]
